FAERS Safety Report 23319264 (Version 1)
Quarter: 2023Q4

REPORT INFORMATION
  Report Type: Report from Study
  Country: US (occurrence: US)
  Receive Date: 20231220
  Receipt Date: 20231220
  Transmission Date: 20240110
  Serious: Yes (Other)
  Sender: FDA-Public Use
  Company Number: US-ABBVIE-5347267

PATIENT
  Age: 73 Year
  Sex: Male

DRUGS (3)
  1. HUMIRA [Suspect]
     Active Substance: ADALIMUMAB
     Indication: Psoriasis
     Route: 058
     Dates: start: 20180729
  2. HUMIRA [Suspect]
     Active Substance: ADALIMUMAB
     Route: 058
     Dates: start: 20201105
  3. HUMIRA [Suspect]
     Active Substance: ADALIMUMAB
     Dosage: DRUG END DATE 2018
     Route: 058
     Dates: start: 20180518

REACTIONS (5)
  - Hip arthroplasty [Recovered/Resolved]
  - Lip squamous cell carcinoma [Recovering/Resolving]
  - Sleep apnoea syndrome [Not Recovered/Not Resolved]
  - Exposure to toxic agent [Not Recovered/Not Resolved]
  - Nasal injury [Not Recovered/Not Resolved]

NARRATIVE: CASE EVENT DATE: 20181214
